FAERS Safety Report 19889625 (Version 2)
Quarter: 2021Q4

REPORT INFORMATION
  Report Type: Spontaneous
  Country: US (occurrence: US)
  Receive Date: 20210928
  Receipt Date: 20211015
  Transmission Date: 20220304
  Serious: No
  Sender: FDA-Public Use
  Company Number: US-LUPIN PHARMACEUTICALS INC.-2021-18157

PATIENT
  Age: 37 Year
  Sex: Female
  Weight: 81.64 kg

DRUGS (10)
  1. BLISOVI 24 FE [Suspect]
     Active Substance: ETHINYL ESTRADIOL\NORETHINDRONE ACETATE
     Indication: Product used for unknown indication
     Dosage: UNKNOWN, TAKING SINCE 8 YEARS
     Route: 065
  2. ZINC [Suspect]
     Active Substance: ZINC
     Indication: Product used for unknown indication
     Dosage: UNK
     Route: 065
  3. SYNTHROID [Concomitant]
     Active Substance: LEVOTHYROXINE SODIUM
     Indication: Thyroid disorder
     Dosage: UNK UNK, QD
     Route: 065
  4. MAGNESIUM [Concomitant]
     Active Substance: MAGNESIUM
     Indication: Constipation
     Dosage: 200 MILLIGRAM, BID (2X100MG PILLS IN THE MORNING AND 2X 100MG PILLS IN THE EVENING)
     Route: 065
  5. Woman Omega Complex [Concomitant]
     Indication: Skin disorder
     Dosage: UNK UNK, QD
     Route: 065
  6. THEANINE [Concomitant]
     Active Substance: THEANINE
     Indication: Feeling of relaxation
     Dosage: 200 MILLIGRAM, QD
     Route: 065
  7. THEANINE [Concomitant]
     Active Substance: THEANINE
     Indication: Sleep disorder therapy
  8. FOLATE SODIUM [Concomitant]
     Active Substance: FOLATE SODIUM
     Indication: Supplementation therapy
     Dosage: 500 MCG, QD
     Route: 065
  9. PREVIDENT [Concomitant]
     Active Substance: SODIUM FLUORIDE
     Indication: Product used for unknown indication
     Dosage: UNK UNK, BID
     Route: 065
  10. SALT [Concomitant]
     Active Substance: SODIUM CHLORIDE
     Indication: Drug therapy
     Dosage: 1 GRAM, BID, SALT TABLETS 2G, 1G DURING THE BREAKFAST AND 1G IN THE LUNCH, TWICE DAILY
     Route: 065

REACTIONS (6)
  - Vulvovaginal pruritus [Not Recovered/Not Resolved]
  - Anal fissure [Not Recovered/Not Resolved]
  - Anal pruritus [Not Recovered/Not Resolved]
  - Skin laceration [Not Recovered/Not Resolved]
  - Skin exfoliation [Not Recovered/Not Resolved]
  - Dry skin [Not Recovered/Not Resolved]

NARRATIVE: CASE EVENT DATE: 20170101
